FAERS Safety Report 12557751 (Version 1)
Quarter: 2016Q3

REPORT INFORMATION
  Report Type: Spontaneous
  Country: CN (occurrence: CN)
  Receive Date: 20160714
  Receipt Date: 20160714
  Transmission Date: 20161109
  Serious: Yes (Hospitalization)
  Sender: FDA-Public Use
  Company Number: CN-PFIZER INC-2016339052

PATIENT
  Age: 12 Year
  Sex: Male

DRUGS (1)
  1. METHOTREXATE. [Suspect]
     Active Substance: METHOTREXATE
     Indication: ACUTE LYMPHOCYTIC LEUKAEMIA
     Dosage: 5780 MG, 1X/DAY
     Route: 041
     Dates: start: 20151220, end: 20151225

REACTIONS (1)
  - Dermatitis exfoliative [Recovering/Resolving]

NARRATIVE: CASE EVENT DATE: 20151225
